FAERS Safety Report 8237984 (Version 2)
Quarter: 2013Q4

REPORT INFORMATION
  Report Type: Spontaneous
  Country: US (occurrence: US)
  Receive Date: 20111109
  Receipt Date: 20131205
  Transmission Date: 20140711
  Serious: Yes (Death, Hospitalization)
  Sender: FDA-Public Use
  Company Number: US-GLAXOSMITHKLINE-A0915572A

PATIENT
  Age: 34 Year
  Sex: Female

DRUGS (1)
  1. AVANDIA [Suspect]
     Indication: DIABETES MELLITUS
     Dosage: 2MG PER DAY
     Route: 048
     Dates: start: 200301, end: 200609

REACTIONS (4)
  - Cardiomegaly [Fatal]
  - Supraventricular tachycardia [Unknown]
  - Coronary artery disease [Unknown]
  - Cardiac failure congestive [Unknown]
